FAERS Safety Report 22696937 (Version 3)
Quarter: 2024Q2

REPORT INFORMATION
  Report Type: Spontaneous
  Country: US (occurrence: US)
  Receive Date: 20230712
  Receipt Date: 20240508
  Transmission Date: 20240716
  Serious: No
  Sender: FDA-Public Use
  Company Number: US-SA-SAC20230711001601

PATIENT
  Age: 48 Year
  Sex: Female

DRUGS (9)
  1. DUPIXENT [Suspect]
     Active Substance: DUPILUMAB
     Indication: Nasal polyps
     Dosage: 300 MG, QOW
     Route: 058
  2. DUPIXENT [Suspect]
     Active Substance: DUPILUMAB
     Dosage: 1 DF, QOW
     Route: 058
     Dates: start: 20230710
  3. DUPIXENT [Suspect]
     Active Substance: DUPILUMAB
     Dosage: 300 MG, Q4W
     Route: 058
     Dates: start: 20230710, end: 20240425
  4. FLONASE [Concomitant]
     Active Substance: FLUTICASONE PROPIONATE
  5. ESTRADIOL [Concomitant]
     Active Substance: ESTRADIOL
     Dosage: UNK
  6. BUPROPION [Concomitant]
     Active Substance: BUPROPION
     Dosage: UNK
  7. SINGULAIR [Concomitant]
     Active Substance: MONTELUKAST SODIUM
     Dosage: UNK
  8. NUCALA [Concomitant]
     Active Substance: MEPOLIZUMAB
  9. AMOXICILLIN [Concomitant]
     Active Substance: AMOXICILLIN

REACTIONS (8)
  - Sinus congestion [Unknown]
  - Nasal polyps [Unknown]
  - Condition aggravated [Unknown]
  - Injection site pain [Unknown]
  - Injection site bruising [Unknown]
  - Treatment noncompliance [Unknown]
  - Inappropriate schedule of product administration [Unknown]
  - Drug ineffective [Unknown]

NARRATIVE: CASE EVENT DATE: 20230101
